FAERS Safety Report 6326927-1 (Version None)
Quarter: 2009Q3

REPORT INFORMATION
  Report Type: 
  Country: None (occurrence: None)
  Receive Date: 20090821
  Receipt Date: 20090805
  Transmission Date: 20100115
  Serious: Yes (Hospitalization)
  Sender: FDA-Public Use
  Company Number: VAL_00305_2009

PATIENT
  Age: 74 Year
  Sex: Male

DRUGS (1)
  1. CALCITRIOL [Suspect]
     Indication: HYPERPARATHYROIDISM
     Dosage: DF ORAL
     Route: 048

REACTIONS (3)
  - ALTERED STATE OF CONSCIOUSNESS [None]
  - HYPERCALCAEMIA [None]
  - RENAL FAILURE ACUTE [None]
